FAERS Safety Report 22695655 (Version 4)
Quarter: 2023Q4

REPORT INFORMATION
  Report Type: Report from Study
  Country: US (occurrence: US)
  Receive Date: 20230712
  Receipt Date: 20231130
  Transmission Date: 20240110
  Serious: Yes (Death, Life-Threatening, Hospitalization, Other)
  Sender: FDA-Public Use
  Company Number: US-EXELIXIS-XL18423065587

PATIENT

DRUGS (1)
  1. CABOZANTINIB [Suspect]
     Active Substance: CABOZANTINIB
     Indication: Non-small cell lung cancer metastatic
     Dosage: UNK
     Dates: start: 20230501, end: 20230630

REACTIONS (23)
  - Dehydration [Not Recovered/Not Resolved]
  - Sepsis [Unknown]
  - Peripheral motor neuropathy [Unknown]
  - Medical device site infection [Not Recovered/Not Resolved]
  - Embolism [Not Recovered/Not Resolved]
  - Decreased appetite [Unknown]
  - Nausea [Unknown]
  - Vomiting [Unknown]
  - Fatigue [Unknown]
  - Anaemia [Unknown]
  - Hypokalaemia [Unknown]
  - Arthralgia [Unknown]
  - Respiratory failure [Fatal]
  - Colitis [Unknown]
  - Troponin T increased [Unknown]
  - Sinus tachycardia [Unknown]
  - Myalgia [Unknown]
  - Hypocalcaemia [Unknown]
  - Hypoalbuminaemia [Unknown]
  - Dysphagia [Unknown]
  - Dyspnoea [Unknown]
  - Diarrhoea [Unknown]
  - Abdominal pain [Unknown]

NARRATIVE: CASE EVENT DATE: 20230522
